FAERS Safety Report 9587763 (Version 1)
Quarter: 2013Q4

REPORT INFORMATION
  Report Type: Spontaneous
  Country: US (occurrence: US)
  Receive Date: 20131003
  Receipt Date: 20131003
  Transmission Date: 20140711
  Serious: No
  Sender: FDA-Public Use
  Company Number: US-COVIDIEN/TYCO HEALTHCARE/MALLINCKRODT-T201304270

PATIENT
  Age: 56 Year
  Sex: Male
  Weight: 105.21 kg

DRUGS (9)
  1. HYDROMORPHONE [Suspect]
     Indication: PAIN MANAGEMENT
     Dosage: 4 MG, TID-QID PRN
     Route: 048
     Dates: start: 2011
  2. OXYCONTIN [Concomitant]
     Indication: PAIN
     Dosage: 20 MG, TID
     Route: 048
  3. CELEBREX [Concomitant]
     Indication: PAIN
     Dosage: 200 MG, QD
     Route: 048
  4. PREVACID [Concomitant]
     Indication: GASTROOESOPHAGEAL REFLUX DISEASE
     Dosage: 30 MG, QPM
     Route: 048
  5. LEXAPRO [Concomitant]
     Indication: DEPRESSION
     Dosage: 20 MG, QHS
     Route: 048
  6. AMITRIPTYLINE [Concomitant]
     Indication: SLEEP DISORDER
     Dosage: 25 MG, 3-4 TABLETS QHS
     Route: 048
  7. BACLOFEN [Concomitant]
     Indication: MUSCLE RELAXANT THERAPY
     Dosage: 5-10MG, TID
     Route: 048
  8. LISINOPRIL [Concomitant]
     Indication: HYPERTENSION
     Dosage: 20 MG, QD
     Route: 048
  9. DEPO-TESTOSTERONE [Concomitant]
     Indication: PRODUCT USED FOR UNKNOWN INDICATION
     Dosage: 1 ML, MONTHLY
     Route: 030

REACTIONS (2)
  - Drug screen negative [Unknown]
  - Drug ineffective [Not Recovered/Not Resolved]
